FAERS Safety Report 8490025-1 (Version None)
Quarter: 2012Q3

REPORT INFORMATION
  Report Type: 
  Country: None (occurrence: None)
  Receive Date: 20120705
  Receipt Date: 20120628
  Transmission Date: 20120928
  Serious: Yes (Hospitalization)
  Sender: FDA-Public Use
  Company Number: JP-JNJFOC-20100210556

PATIENT
  Sex: Female
  Weight: 63 kg

DRUGS (11)
  1. DOXORUBICIN HCL [Suspect]
     Dosage: CYCLE 2
     Route: 042
     Dates: start: 20100105, end: 20100105
  2. DECADRON [Concomitant]
     Route: 048
     Dates: start: 20091209
  3. HACHIAZULE [Concomitant]
     Indication: PROPHYLAXIS
     Route: 049
     Dates: start: 20091208
  4. DECADRON [Concomitant]
     Route: 048
     Dates: start: 20091217
  5. HIRUDOID CREAM [Concomitant]
     Indication: PROPHYLAXIS
     Route: 061
     Dates: start: 20091208
  6. ALLOPURINOL [Concomitant]
     Indication: PROPHYLAXIS
     Route: 049
     Dates: start: 20091208
  7. DOXORUBICIN HCL [Suspect]
     Indication: OVARIAN CANCER RECURRENT
     Dosage: CYCLE 1
     Route: 042
     Dates: start: 20091209, end: 20091209
  8. OMEPRAZOLE [Concomitant]
     Indication: PROPHYLAXIS
     Route: 048
     Dates: start: 20091208
  9. DECADRON [Concomitant]
     Route: 042
     Dates: start: 20100105, end: 20100105
  10. DECADRON [Concomitant]
     Route: 048
     Dates: start: 20091215
  11. DECADRON [Concomitant]
     Indication: PROPHYLAXIS
     Route: 042
     Dates: start: 20091208

REACTIONS (1)
  - INTERSTITIAL LUNG DISEASE [None]
